FAERS Safety Report 4973770-1 (Version None)
Quarter: 2006Q2

REPORT INFORMATION
  Report Type: 
  Country: None (occurrence: None)
  Receive Date: 20060414
  Receipt Date: 20040930
  Transmission Date: 20061013
  Serious: Yes (Hospitalization, Disabling, Other)
  Sender: FDA-Public Use
  Company Number: US-MERCK-0410USA00044

PATIENT
  Age: 28 Year
  Sex: Female
  Weight: 59 kg

DRUGS (18)
  1. VIOXX [Suspect]
     Indication: ARTHRALGIA
     Route: 048
     Dates: start: 19990101, end: 20031201
  2. VIOXX [Suspect]
     Route: 048
  3. LORTAB [Concomitant]
     Route: 065
  4. KLONOPIN [Concomitant]
     Route: 048
  5. KLONOPIN [Concomitant]
     Route: 048
  6. ELAVIL [Concomitant]
     Route: 048
  7. ELAVIL [Concomitant]
     Route: 048
  8. ZOLOFT [Concomitant]
     Route: 065
  9. PRILOSEC [Concomitant]
     Route: 048
  10. FIORINAL [Concomitant]
     Route: 065
  11. SERZONE [Concomitant]
     Route: 065
     Dates: start: 19980101
  12. VICODIN [Concomitant]
     Route: 065
     Dates: start: 19980101
  13. TYLENOL (CAPLET) [Concomitant]
     Route: 065
     Dates: start: 19940101
  14. NAPROSYN [Concomitant]
     Route: 065
     Dates: start: 19940101
  15. ASPIRIN [Concomitant]
     Route: 065
     Dates: start: 19940101
  16. ADVIL [Concomitant]
     Route: 065
     Dates: start: 19940101
  17. VIOXX [Suspect]
     Indication: BACK PAIN
     Route: 048
     Dates: start: 19990101, end: 20031201
  18. VIOXX [Suspect]
     Route: 048

REACTIONS (27)
  - ABORTION COMPLETE [None]
  - ACCIDENTAL OVERDOSE [None]
  - ANAEMIA [None]
  - ANXIETY [None]
  - APHASIA [None]
  - CHRONIC FATIGUE SYNDROME [None]
  - COGNITIVE DISORDER [None]
  - DEPRESSION [None]
  - DYSURIA [None]
  - GASTROENTERITIS [None]
  - HEADACHE [None]
  - HEMIPARESIS [None]
  - HYPOAESTHESIA [None]
  - HYPOKALAEMIA [None]
  - HYPOMAGNESAEMIA [None]
  - HYPOTENSION [None]
  - ISCHAEMIC STROKE [None]
  - JOINT SWELLING [None]
  - MENTAL DISORDER [None]
  - MIGRAINE [None]
  - NERVOUS SYSTEM DISORDER [None]
  - PANIC ATTACK [None]
  - RENAL FAILURE [None]
  - SLEEP APNOEA SYNDROME [None]
  - SNORING [None]
  - VIRAL INFECTION [None]
  - VISUAL DISTURBANCE [None]
